FAERS Safety Report 15567663 (Version 2)
Quarter: 2019Q1

REPORT INFORMATION
  Report Type: Spontaneous
  Country: US (occurrence: US)
  Receive Date: 20181030
  Receipt Date: 20190313
  Transmission Date: 20190417
  Serious: No
  Sender: FDA-Public Use
  Company Number: US-BAUSCH-BL-2018-028372

PATIENT
  Sex: Male
  Weight: 88 kg

DRUGS (12)
  1. ENALAPRIL MALEATE. [Interacting]
     Active Substance: ENALAPRIL MALEATE
     Indication: BLOOD PRESSURE ABNORMAL
     Dosage: ORANGE ROUND TABLET
     Route: 048
  2. CALCIUM [Concomitant]
     Active Substance: CALCIUM
     Indication: PRODUCT USED FOR UNKNOWN INDICATION
  3. NIFEDIPINE. [Interacting]
     Active Substance: NIFEDIPINE
     Route: 048
     Dates: start: 2018
  4. FOLIC ACID. [Interacting]
     Active Substance: FOLIC ACID
     Indication: PRODUCT USED FOR UNKNOWN INDICATION
     Route: 065
  5. MULTIVITAMIN [Interacting]
     Active Substance: VITAMINS
     Indication: PRODUCT USED FOR UNKNOWN INDICATION
     Route: 065
  6. CRESTOR [Concomitant]
     Active Substance: ROSUVASTATIN CALCIUM
     Indication: PRODUCT USED FOR UNKNOWN INDICATION
  7. NIFEDIPINE. [Suspect]
     Active Substance: NIFEDIPINE
     Indication: HEART RATE DECREASED
     Dosage: STARTED ABOUT 6 TO 8 WEEKS AGO
     Route: 048
     Dates: start: 2018, end: 2018
  8. ENALAPRIL MALEATE. [Interacting]
     Active Substance: ENALAPRIL MALEATE
     Dosage: STARTED ABOUT 4 TO 7 WEEKS AGO, DOSE DECREASED
     Route: 048
     Dates: start: 2018, end: 2018
  9. NEXIUM [Concomitant]
     Active Substance: ESOMEPRAZOLE MAGNESIUM
     Indication: PRODUCT USED FOR UNKNOWN INDICATION
  10. ENALAPRIL MALEATE. [Interacting]
     Active Substance: ENALAPRIL MALEATE
     Route: 048
     Dates: start: 2018
  11. VITAMIN D [Interacting]
     Active Substance: CHOLECALCIFEROL
     Indication: PRODUCT USED FOR UNKNOWN INDICATION
     Route: 065
  12. NIFEDIPINE. [Interacting]
     Active Substance: NIFEDIPINE
     Indication: OFF LABEL USE
     Dosage: DOSE DECREASED ABOUT 4 TO 7 WEEKS AGO
     Route: 048
     Dates: start: 2018, end: 2018

REACTIONS (3)
  - Dizziness [Not Recovered/Not Resolved]
  - Drug interaction [Unknown]
  - Therapeutic product effective for unapproved indication [Unknown]

NARRATIVE: CASE EVENT DATE: 2018
